FAERS Safety Report 8844512 (Version 1)
Quarter: 2012Q4

REPORT INFORMATION
  Report Type: Spontaneous
  Country: US (occurrence: None)
  Receive Date: 20121016
  Receipt Date: 20121016
  Transmission Date: 20130627
  Serious: Yes (Hospitalization)
  Sender: FDA-Public Use
  Company Number: None

PATIENT
  Age: 68 Year
  Sex: Female
  Weight: 53.5 kg

DRUGS (6)
  1. TRAMADOL [Suspect]
     Dosage: (1-2tabs) prn
recent
     Route: 048
  2. ATARAX [Suspect]
     Dosage: PRN
     Route: 048
  3. CIPRO [Concomitant]
  4. CLONAZEPAM [Concomitant]
  5. TRAZADONE [Concomitant]
  6. EFFEXOR [Concomitant]

REACTIONS (2)
  - Renal failure acute [None]
  - Urinary retention [None]
